FAERS Safety Report 8243224-8 (Version None)
Quarter: 2012Q1

REPORT INFORMATION
  Report Type: 
  Country: None (occurrence: None)
  Receive Date: 20120329
  Receipt Date: 20120315
  Transmission Date: 20120608
  Serious: Yes (Other)
  Sender: FDA-Public Use
  Company Number: US-MYLANLABS-2012S1006041

PATIENT
  Age: 24 Year
  Sex: Female

DRUGS (6)
  1. DIPHENHYDRAMINE HCL [Concomitant]
     Indication: INSOMNIA
     Route: 065
  2. OXYCODONE HCL [Concomitant]
     Indication: OVARIAN HYPERSTIMULATION SYNDROME
     Route: 065
  3. LORAZEPAM [Concomitant]
     Indication: ADJUSTMENT DISORDER WITH MIXED ANXIETY AND DEPRESSED MOOD
     Route: 065
  4. CYCLOPHOSPHAMIDE [Suspect]
     Indication: BREAST CANCER
     Route: 065
  5. DOXORUBICIN HCL [Suspect]
     Indication: BREAST CANCER
     Route: 065
  6. PACLITAXEL [Suspect]
     Indication: BREAST CANCER
     Route: 065

REACTIONS (1)
  - COGNITIVE DISORDER [None]
